FAERS Safety Report 10580032 (Version 9)
Quarter: 2019Q4

REPORT INFORMATION
  Report Type: Spontaneous
  Country: CA (occurrence: CA)
  Receive Date: 20141112
  Receipt Date: 20191113
  Transmission Date: 20200122
  Serious: Yes (Hospitalization, Other)
  Sender: FDA-Public Use
  Company Number: CA-PFIZER INC-2014309876

PATIENT
  Age: 54 Year
  Sex: Female
  Weight: 78 kg

DRUGS (37)
  1. PANTOPRAZOLE [Suspect]
     Active Substance: PANTOPRAZOLE
     Dosage: UNK
     Route: 065
  2. ATENOLOL. [Suspect]
     Active Substance: ATENOLOL
     Dosage: 50 MG, QD
     Route: 048
  3. AERIUS [EBASTINE] [Suspect]
     Active Substance: EBASTINE
     Dosage: 5 MG, QD
     Route: 048
  4. ECOTRIN [Suspect]
     Active Substance: ASPIRIN
     Dosage: UNK UNK, 1X/DAY
     Route: 065
  5. IMIPRAMINE HYDROCHLORIDE. [Suspect]
     Active Substance: IMIPRAMINE HYDROCHLORIDE
     Dosage: 50 MG, 2X/DAY
     Route: 065
  6. STELARA [Suspect]
     Active Substance: USTEKINUMAB
     Dosage: UNK
     Route: 065
  7. AERIUS (DESLORATADINE) [Suspect]
     Active Substance: DESLORATADINE
     Dosage: 5 MG, QD
     Route: 048
  8. ALVESCO [Suspect]
     Active Substance: CICLESONIDE
     Dosage: 400 MILLIGRAM
     Route: 065
  9. MAVIK [Suspect]
     Active Substance: TRANDOLAPRIL
     Dosage: 2 MG, QD
     Route: 065
  10. EBASTINE [Suspect]
     Active Substance: EBASTINE
     Dosage: 5 MILLIGRAM, QD
     Route: 048
  11. CLOPIDOGREL BISULFATE. [Suspect]
     Active Substance: CLOPIDOGREL BISULFATE
     Dosage: UNK
     Route: 065
  12. CRESTOR [Suspect]
     Active Substance: ROSUVASTATIN CALCIUM
     Dosage: UNK
     Route: 065
  13. AERIUS (DESLORATADINE) [Suspect]
     Active Substance: DESLORATADINE
     Dosage: 50 MG, QD
     Route: 048
  14. ATENOLOL. [Suspect]
     Active Substance: ATENOLOL
     Dosage: UNK
     Route: 065
  15. CLARITHROMYCIN. [Suspect]
     Active Substance: CLARITHROMYCIN
     Dosage: 20 MG, QD
     Route: 048
  16. CLARITHROMYCIN. [Suspect]
     Active Substance: CLARITHROMYCIN
     Dosage: 25 MG, BID
     Route: 065
  17. AERIUS [EBASTINE] [Suspect]
     Active Substance: EBASTINE
     Dosage: 50 MG, QD
     Route: 048
  18. SULCRATE [Suspect]
     Active Substance: SUCRALFATE
     Dosage: 1000 MG, QD
     Route: 065
  19. DETROL LA [Suspect]
     Active Substance: TOLTERODINE TARTRATE
     Dosage: 4 MG, 1X/DAY
     Route: 065
  20. CLARITHROMYCIN. [Suspect]
     Active Substance: CLARITHROMYCIN
     Dosage: 40 MG, QD
     Route: 065
  21. AERIUS [EBASTINE] [Suspect]
     Active Substance: EBASTINE
     Dosage: 10 MG, QD
     Route: 065
  22. DOMPERIDONE [Suspect]
     Active Substance: DOMPERIDONE
     Dosage: 10 MG, QD
     Route: 065
  23. EZETROL [Suspect]
     Active Substance: EZETIMIBE
     Dosage: 10 MG, QD
     Route: 048
  24. SULCRATE [Suspect]
     Active Substance: SUCRALFATE
     Dosage: 1000 MG, BID
     Route: 065
  25. SINGULAIR [Concomitant]
     Active Substance: MONTELUKAST SODIUM
     Dosage: UNK
     Route: 065
  26. DETROL LA [Suspect]
     Active Substance: TOLTERODINE TARTRATE
     Dosage: 40 MG, QD
     Route: 065
  27. AERIUS (DESLORATADINE) [Suspect]
     Active Substance: DESLORATADINE
     Dosage: 10 MG, QD
     Route: 065
  28. PANTOPRAZOLE [Suspect]
     Active Substance: PANTOPRAZOLE
     Dosage: 40 MG, 1X/DAY
     Route: 065
  29. CLOPIDOGREL BISULFATE. [Suspect]
     Active Substance: CLOPIDOGREL BISULFATE
     Dosage: 75 MG, QD
     Route: 065
  30. ALVESCO [Suspect]
     Active Substance: CICLESONIDE
     Dosage: 400 UG, UNK, PRESSURISED INHALATION
     Route: 055
  31. IMIPRAMINE HYDROCHLORIDE. [Suspect]
     Active Substance: IMIPRAMINE HYDROCHLORIDE
     Dosage: UNK
  32. SULCRATE [Suspect]
     Active Substance: SUCRALFATE
     Dosage: 10 MILLIGRAM, QD
     Route: 065
  33. AERIUS (DESLORATADINE) [Suspect]
     Active Substance: DESLORATADINE
     Dosage: 5 MG, QD
     Route: 048
  34. CLARITHROMYCIN. [Suspect]
     Active Substance: CLARITHROMYCIN
     Dosage: 75 MG, QD
     Route: 065
  35. CLARITHROMYCIN. [Suspect]
     Active Substance: CLARITHROMYCIN
     Dosage: 100 MG, QD
     Route: 065
  36. CRESTOR [Suspect]
     Active Substance: ROSUVASTATIN CALCIUM
     Dosage: 20 MG, QD
     Route: 048
  37. DOMPERIDONE [Suspect]
     Active Substance: DOMPERIDONE
     Dosage: 10 MG, BID
     Route: 065

REACTIONS (3)
  - Hallucination, auditory [Recovered/Resolved]
  - Paranoia [Recovered/Resolved]
  - Psychotic disorder [Recovered/Resolved]
